FAERS Safety Report 5424009-4 (Version None)
Quarter: 2007Q3

REPORT INFORMATION
  Report Type: 
  Country: None (occurrence: None)
  Receive Date: 20070727
  Receipt Date: 20061010
  Transmission Date: 20080115
  Serious: Yes (Hospitalization)
  Sender: FDA-Public Use
  Company Number: THYM-11068

PATIENT
  Age: 47 Year
  Sex: Female

DRUGS (15)
  1. THYMOGLOBULIN [Suspect]
     Indication: RENAL TRANSPLANT
     Dosage: 100 MG QD IV
     Route: 042
     Dates: start: 20060301, end: 20060301
  2. THYMOGLOBULIN [Suspect]
     Indication: RENAL TRANSPLANT
     Dosage: 50 MG QD IV
     Route: 042
     Dates: start: 20060302, end: 20060302
  3. THYMOGLOBULIN [Suspect]
     Indication: RENAL TRANSPLANT
     Dosage: 100 MG QD IV
     Route: 042
     Dates: start: 20060303, end: 20060303
  4. LANSOPRAZOLE [Concomitant]
  5. EZETIMIBE [Concomitant]
  6. ALBUTEROL [Concomitant]
  7. AMLODIPINE [Concomitant]
  8. BACTRIM [Concomitant]
  9. DOCUSATE [Concomitant]
  10. MULTI-VITAMIN [Concomitant]
  11. MYCOPHENOLATE MOFETIL [Concomitant]
  12. NYSTATIN [Concomitant]
  13. PREDNISONE [Concomitant]
  14. TACROLIMUS [Concomitant]
  15. VALGANCICLOVIR HCL [Concomitant]

REACTIONS (2)
  - OEDEMA PERIPHERAL [None]
  - PERINEPHRIC EFFUSION [None]
